FAERS Safety Report 9729478 (Version 1)
Quarter: 2013Q4

REPORT INFORMATION
  Report Type: Spontaneous
  Country: US (occurrence: US)
  Receive Date: 20131204
  Receipt Date: 20131204
  Transmission Date: 20140711
  Serious: No
  Sender: FDA-Public Use
  Company Number: US-GILEAD-2009-0021632

PATIENT
  Sex: Female
  Weight: 81.65 kg

DRUGS (9)
  1. LETAIRIS [Suspect]
     Indication: PULMONARY ARTERIAL HYPERTENSION
     Route: 048
     Dates: start: 20090402
  2. LASIX [Concomitant]
  3. COMBIVENT INHALER [Concomitant]
  4. PREDNISONE [Concomitant]
  5. PRILOSEC [Concomitant]
  6. IMURAN [Concomitant]
  7. FOSAMAX [Concomitant]
  8. BACTRIM [Concomitant]
  9. REGLAN [Concomitant]

REACTIONS (1)
  - Gait disturbance [Unknown]
